FAERS Safety Report 8949173 (Version 1)
Quarter: 2012Q4

REPORT INFORMATION
  Report Type: 
  Country: MX (occurrence: MX)
  Receive Date: 20121206
  Receipt Date: 20121206
  Transmission Date: 20130627
  Serious: Yes (Other)
  Sender: FDA-Public Use
  Company Number: MX-PFIZER INC-2012306676

PATIENT
  Age: 67 Year
  Sex: Female
  Weight: 82 kg

DRUGS (5)
  1. CELEBREX [Suspect]
     Indication: ACUTE PAIN
     Dosage: 200 mg, 2x/day during 3 days
     Route: 048
     Dates: start: 20121005, end: 20121009
  2. CELEBREX [Suspect]
     Dosage: 200 mg, 1x/day during 12 days
     Route: 048
  3. GABAPENTIN [Concomitant]
     Indication: PAIN
     Dosage: 300 mg, 1x/day during 4 days
     Route: 048
     Dates: start: 20121005, end: 20121009
  4. GABAPENTIN [Concomitant]
     Dosage: 1 DF, 2x/day during 12 days
  5. TRAMADOL [Concomitant]
     Indication: SCIATIC NERVE INJURY
     Dosage: 25 mg, UNK
     Route: 048
     Dates: start: 20121005, end: 20121009

REACTIONS (3)
  - Poisoning [Recovered/Resolved]
  - Rash [Recovered/Resolved]
  - Inflammation [Recovered/Resolved]
